FAERS Safety Report 11220630 (Version 2)
Quarter: 2017Q1

REPORT INFORMATION
  Report Type: Report from Study
  Country: US (occurrence: US)
  Receive Date: 20150626
  Receipt Date: 20170125
  Transmission Date: 20170428
  Serious: Yes (Hospitalization)
  Sender: FDA-Public Use
  Company Number: US-ROCHE-1559009

PATIENT
  Age: 64 Year
  Sex: Female

DRUGS (34)
  1. BEVACIZUMAB [Suspect]
     Active Substance: BEVACIZUMAB
     Route: 050
     Dates: end: 20130418
  2. BEVACIZUMAB [Suspect]
     Active Substance: BEVACIZUMAB
     Route: 050
     Dates: start: 20150528, end: 20150528
  3. METOPROLOL TARTRATE. [Concomitant]
     Active Substance: METOPROLOL TARTRATE
     Route: 048
     Dates: start: 20150304
  4. FUROSEMIDE. [Concomitant]
     Active Substance: FUROSEMIDE
     Route: 042
     Dates: start: 20150303
  5. SYNTHROID [Concomitant]
     Active Substance: LEVOTHYROXINE SODIUM
     Dosage: 50 MCG
     Route: 065
     Dates: start: 20150517
  6. ACETAMINOPHEN. [Concomitant]
     Active Substance: ACETAMINOPHEN
     Route: 048
  7. GLIPIZIDE. [Concomitant]
     Active Substance: GLIPIZIDE
     Route: 048
     Dates: start: 20150308
  8. BEVACIZUMAB [Suspect]
     Active Substance: BEVACIZUMAB
     Route: 050
     Dates: start: 20120615, end: 20120615
  9. BEVACIZUMAB [Suspect]
     Active Substance: BEVACIZUMAB
     Route: 050
     Dates: start: 20160406, end: 20160406
  10. IBUPROFEN. [Concomitant]
     Active Substance: IBUPROFEN
     Route: 048
  11. PREDNISONE ACETATE [Concomitant]
     Active Substance: PREDNISONE ACETATE
     Route: 047
     Dates: start: 20120623
  12. LISINOPRIL. [Concomitant]
     Active Substance: LISINOPRIL
     Route: 048
     Dates: start: 20120801
  13. CARDIZEM [Concomitant]
     Active Substance: DILTIAZEM HYDROCHLORIDE
     Route: 042
     Dates: start: 20150303
  14. BEVACIZUMAB [Suspect]
     Active Substance: BEVACIZUMAB
     Route: 050
     Dates: start: 20120712, end: 20120712
  15. BEVACIZUMAB [Suspect]
     Active Substance: BEVACIZUMAB
     Route: 050
     Dates: start: 20150729, end: 20150729
  16. BEVACIZUMAB [Suspect]
     Active Substance: BEVACIZUMAB
     Route: 050
     Dates: start: 20120809, end: 20120809
  17. BEVACIZUMAB [Suspect]
     Active Substance: BEVACIZUMAB
     Route: 050
     Dates: start: 20121010, end: 20121010
  18. BEVACIZUMAB [Suspect]
     Active Substance: BEVACIZUMAB
     Route: 050
     Dates: start: 20130221, end: 20130221
  19. BEVACIZUMAB [Suspect]
     Active Substance: BEVACIZUMAB
     Route: 050
     Dates: start: 20130522, end: 20130522
  20. AMOXICILLIN. [Concomitant]
     Active Substance: AMOXICILLIN
     Route: 048
     Dates: start: 20141215
  21. METFORMIN [Concomitant]
     Active Substance: METFORMIN HYDROCHLORIDE
     Route: 048
     Dates: start: 201205, end: 201503
  22. BEVACIZUMAB [Suspect]
     Active Substance: BEVACIZUMAB
     Indication: PRODUCT USED FOR UNKNOWN INDICATION
     Route: 050
     Dates: start: 20120419, end: 20120419
  23. BEVACIZUMAB [Suspect]
     Active Substance: BEVACIZUMAB
     Route: 050
     Dates: start: 20120517, end: 20120517
  24. BEVACIZUMAB [Suspect]
     Active Substance: BEVACIZUMAB
     Route: 050
     Dates: end: 20130321
  25. BEVACIZUMAB [Suspect]
     Active Substance: BEVACIZUMAB
     Route: 050
     Dates: end: 20130619
  26. GLUCOPHAGE [Concomitant]
     Active Substance: METFORMIN HYDROCHLORIDE
     Route: 048
     Dates: start: 20120801
  27. METOPROLOL SUCCINATE. [Concomitant]
     Active Substance: METOPROLOL SUCCINATE
     Route: 048
     Dates: start: 20150306
  28. FUROSEMIDE. [Concomitant]
     Active Substance: FUROSEMIDE
     Route: 048
     Dates: start: 20150308
  29. RANIBIZUMAB [Suspect]
     Active Substance: RANIBIZUMAB
     Indication: DIABETIC RETINOPATHY
     Dosage: MOST RECENT DOSE PRIOR TO SAE ON 21/MAR/2013
     Route: 050
     Dates: start: 20120419
  30. BEVACIZUMAB [Suspect]
     Active Substance: BEVACIZUMAB
     Route: 050
     Dates: start: 20160512, end: 20160512
  31. BRIMONIDINE [Concomitant]
     Active Substance: BRIMONIDINE TARTRATE
     Route: 065
     Dates: start: 20120623
  32. OFLOXACIN. [Concomitant]
     Active Substance: OFLOXACIN
     Route: 047
     Dates: start: 20120623
  33. METOPROLOL TARTRATE. [Concomitant]
     Active Substance: METOPROLOL TARTRATE
     Route: 048
     Dates: start: 20150305
  34. XARELTO [Concomitant]
     Active Substance: RIVAROXABAN
     Route: 048
     Dates: start: 20150308

REACTIONS (3)
  - Anaemia [Not Recovered/Not Resolved]
  - Atrial fibrillation [Recovered/Resolved]
  - Generalised oedema [Recovered/Resolved]

NARRATIVE: CASE EVENT DATE: 20150303
